FAERS Safety Report 11779890 (Version 2)
Quarter: 2015Q4

REPORT INFORMATION
  Report Type: Other
  Country: JP (occurrence: JP)
  Receive Date: 20151125
  Receipt Date: 20151215
  Transmission Date: 20160304
  Serious: Yes (Hospitalization)
  Sender: FDA-Public Use
  Company Number: JP-SPECTRUM PHARMACEUTICALS, INC.-15-P-JP-00426

PATIENT
  Age: 65 Year
  Sex: Female
  Weight: 38 kg

DRUGS (7)
  1. PRALATREXATE [Suspect]
     Active Substance: PRALATREXATE
     Indication: ANGIOIMMUNOBLASTIC T-CELL LYMPHOMA
     Dosage: 30 MG/M2, QW
     Route: 042
     Dates: start: 20150915, end: 20151006
  2. TAISHO KANPO ICHOUYAKU [Concomitant]
     Indication: CONSTIPATION
     Dosage: UNK, PRN
     Route: 048
  3. SODIUM RABEPRAZOLE [Concomitant]
     Active Substance: RABEPRAZOLE SODIUM
     Indication: GASTRITIS PROPHYLAXIS
     Dosage: 1 DF, QD
     Route: 048
  4. LEXOTAN [Concomitant]
     Active Substance: BROMAZEPAM
     Indication: ANXIETY DISORDER
     Dosage: 1 DF, QD
     Route: 048
  5. PANVITAN                           /00466101/ [Concomitant]
     Indication: PROPHYLAXIS
     Dosage: 2 G, QD
     Route: 048
  6. AZULENE SODIUM SULFONATE [Concomitant]
     Active Substance: SODIUM GUALENATE
     Indication: PROPHYLAXIS
     Dosage: UNK
     Route: 049
  7. ZOLPIDEM TARTRATE. [Concomitant]
     Active Substance: ZOLPIDEM TARTRATE
     Indication: INSOMNIA
     Dosage: 1 DF, QD
     Route: 048

REACTIONS (1)
  - Pneumocystis jirovecii pneumonia [Recovered/Resolved]

NARRATIVE: CASE EVENT DATE: 20151016
